FAERS Safety Report 6355432-1 (Version None)
Quarter: 2009Q3

REPORT INFORMATION
  Report Type: 
  Country: None (occurrence: None)
  Receive Date: 20090914
  Receipt Date: 20090907
  Transmission Date: 20100115
  Serious: Yes (Other)
  Sender: FDA-Public Use
  Company Number: PHHY2008JP32789

PATIENT
  Sex: Female

DRUGS (4)
  1. GLEEVEC [Suspect]
     Indication: CHRONIC MYELOID LEUKAEMIA
     Dosage: 400 MG/DAY
     Route: 048
     Dates: start: 20080201, end: 20081007
  2. GLEEVEC [Suspect]
     Dosage: 200 MG/DAY
     Route: 048
     Dates: start: 20080912, end: 20081007
  3. INTERFERON [Concomitant]
     Dosage: UNK
  4. LEVOFLOXACIN [Concomitant]
     Indication: C-REACTIVE PROTEIN INCREASED
     Dosage: 400 MG
     Route: 048
     Dates: start: 20081029, end: 20081030

REACTIONS (7)
  - BRONCHITIS [None]
  - DIARRHOEA [None]
  - DYSPNOEA [None]
  - EXCESSIVE GRANULATION TISSUE [None]
  - NAIL DISORDER [None]
  - PARONYCHIA [None]
  - RASH [None]
